FAERS Safety Report 14938027 (Version 1)
Quarter: 2018Q2

REPORT INFORMATION
  Report Type: Spontaneous
  Country: US (occurrence: US)
  Receive Date: 20180507
  Receipt Date: 20180507
  Transmission Date: 20180711
  Serious: Yes (Disabling)
  Sender: FDA-Public Use
  Company Number: None

PATIENT
  Age: 39 Year
  Sex: Female
  Weight: 72 kg

DRUGS (2)
  1. GADOLINIUM [Suspect]
     Active Substance: GADOLINIUM
     Indication: NUCLEAR MAGNETIC RESONANCE IMAGING
     Dates: start: 20100311, end: 20100311
  2. NAC [Concomitant]

REACTIONS (8)
  - Neuropathy peripheral [None]
  - Hepatic pain [None]
  - Burning sensation [None]
  - Headache [None]
  - Gastrointestinal pain [None]
  - Renal pain [None]
  - Peripheral coldness [None]
  - Contrast media toxicity [None]

NARRATIVE: CASE EVENT DATE: 20100311
